FAERS Safety Report 15080417 (Version 1)
Quarter: 2018Q2

REPORT INFORMATION
  Report Type: Report from Study
  Country: None (occurrence: US)
  Receive Date: 20180628
  Receipt Date: 20180628
  Transmission Date: 20180711
  Serious: Yes (Other)
  Sender: FDA-Public Use
  Company Number: US-ABBVIE-18K-163-2401156-00

PATIENT
  Age: 34 Year
  Sex: Female

DRUGS (2)
  1. HUMIRA [Suspect]
     Active Substance: ADALIMUMAB
     Route: 058
  2. HUMIRA [Suspect]
     Active Substance: ADALIMUMAB
     Indication: RHEUMATOID ARTHRITIS
     Route: 058

REACTIONS (8)
  - Back injury [Unknown]
  - Ageusia [Unknown]
  - Therapeutic response shortened [Unknown]
  - Injection site bruising [Unknown]
  - Hypoaesthesia [Unknown]
  - Paraesthesia [Unknown]
  - Seizure [Unknown]
  - Road traffic accident [Unknown]

NARRATIVE: CASE EVENT DATE: 2018
